FAERS Safety Report 5887792-X (Version None)
Quarter: 2008Q3

REPORT INFORMATION
  Report Type: 
  Country: None (occurrence: None)
  Receive Date: 20080916
  Receipt Date: 20080902
  Transmission Date: 20090109
  Serious: Yes (Other)
  Sender: FDA-Public Use
  Company Number: DSU-2008-01381

PATIENT
  Age: 40 Year
  Sex: Male
  Weight: 81.6475 kg

DRUGS (1)
  1. BENICAR [Suspect]
     Indication: HYPERTENSION
     Dosage: 20 MG (20 MG,QD) , PER, ORAL
     Route: 048
     Dates: start: 20060101

REACTIONS (5)
  - ACCIDENT [None]
  - ARTHRITIS [None]
  - MENISCUS LESION [None]
  - PAIN [None]
  - ROAD TRAFFIC ACCIDENT [None]
